FAERS Safety Report 9474146 (Version 2)
Quarter: 2013Q3

REPORT INFORMATION
  Report Type: Spontaneous
  Country: US (occurrence: US)
  Receive Date: 20130823
  Receipt Date: 20130823
  Transmission Date: 20140515
  Serious: Yes (Hospitalization)
  Sender: FDA-Public Use
  Company Number: US-ACTELION-A-US2012-59771

PATIENT
  Age: 36 Year
  Sex: Female

DRUGS (5)
  1. TRACLEER [Suspect]
     Indication: PULMONARY ARTERIAL HYPERTENSION
     Dosage: 125 MG, BID
     Route: 048
     Dates: start: 201004
  2. REMODULIN [Concomitant]
  3. ASPIRIN [Concomitant]
  4. COUMADIN [Concomitant]
     Dosage: 6 MG, QD
     Dates: start: 2012
  5. OXYGEN [Concomitant]

REACTIONS (7)
  - Treatment failure [Recovered/Resolved]
  - Fluid retention [Unknown]
  - Oedema peripheral [Not Recovered/Not Resolved]
  - Injection site pain [Unknown]
  - Injection site swelling [Unknown]
  - Hypotension [Unknown]
  - Dizziness [Unknown]
